FAERS Safety Report 19682612 (Version 2)
Quarter: 2021Q4

REPORT INFORMATION
  Report Type: Report from Study
  Country: US (occurrence: US)
  Receive Date: 20210811
  Receipt Date: 20211026
  Transmission Date: 20220303
  Serious: No
  Sender: FDA-Public Use
  Company Number: NVSC2021US176074

PATIENT
  Sex: Male

DRUGS (2)
  1. COSENTYX [Suspect]
     Active Substance: SECUKINUMAB
     Indication: Psoriasis
     Route: 058
  2. COSENTYX [Suspect]
     Active Substance: SECUKINUMAB
     Dosage: 150 MG, QMO
     Route: 058
     Dates: start: 20210729

REACTIONS (2)
  - Psoriasis [Unknown]
  - Incorrect dose administered [Unknown]
